FAERS Safety Report 25260566 (Version 4)
Quarter: 2025Q3

REPORT INFORMATION
  Report Type: Spontaneous
  Country: US (occurrence: US)
  Receive Date: 20250501
  Receipt Date: 20250718
  Transmission Date: 20251020
  Serious: Yes (Other)
  Sender: NOVO NORDISK
  Company Number: US-NOVOPROD-1408793

PATIENT
  Age: 73 Year
  Sex: Female
  Weight: 97.1 kg

DRUGS (13)
  1. OZEMPIC [Suspect]
     Active Substance: SEMAGLUTIDE
     Indication: Type 2 diabetes mellitus
     Dosage: 1 MG, QW
     Dates: start: 20250130, end: 20250401
  2. VALSARTAN [Concomitant]
     Active Substance: VALSARTAN
     Indication: Hypertension
     Dosage: 320 MG, QD
     Route: 048
     Dates: start: 20240819
  3. AMLODIPINE [Concomitant]
     Active Substance: AMLODIPINE BESYLATE
     Indication: Hypertension
     Dosage: 10 MG, QD
     Route: 048
     Dates: start: 20240819
  4. OZEMPIC [Suspect]
     Active Substance: SEMAGLUTIDE
     Indication: Type 2 diabetes mellitus
     Dosage: 2 MG, QW
     Route: 058
     Dates: start: 20250401, end: 20250418
  5. ATORVASTATIN [Concomitant]
     Active Substance: ATORVASTATIN
     Indication: Product used for unknown indication
     Dosage: 80 MG, QD (AT BEDTIME)
     Route: 048
     Dates: start: 20240729
  6. BACILLUS COAGULANS;INULIN [Concomitant]
     Indication: Product used for unknown indication
     Route: 048
     Dates: start: 20230901
  7. CALCIPOTRIENE 0.005% AND BETAMETHASONE DIPROPIONATE 0.064% [Concomitant]
     Active Substance: BETAMETHASONE DIPROPIONATE\CALCIPOTRIENE
     Indication: Product used for unknown indication
     Route: 003
     Dates: start: 20230614
  8. ERGOCALCIFEROL [Concomitant]
     Active Substance: ERGOCALCIFEROL
     Indication: Product used for unknown indication
     Route: 048
  9. ZETIA [Concomitant]
     Active Substance: EZETIMIBE
     Indication: Product used for unknown indication
     Dosage: 10 MG, QD
     Route: 048
     Dates: start: 20240523, end: 20250625
  10. FLUTICASONE [Concomitant]
     Active Substance: FLUTICASONE
     Indication: Product used for unknown indication
     Route: 045
     Dates: start: 20240529
  11. HYDROCHLOROTHIAZIDE [Concomitant]
     Active Substance: HYDROCHLOROTHIAZIDE
     Indication: Product used for unknown indication
     Dosage: 25 MG, QD
     Route: 048
     Dates: start: 20250120
  12. PANTOPRAZOLE SODIUM [Concomitant]
     Active Substance: PANTOPRAZOLE SODIUM
     Indication: Product used for unknown indication
     Route: 048
     Dates: end: 20250630
  13. PSYLLIUM [PLANTAGO INDICA] [Concomitant]
     Indication: Product used for unknown indication
     Route: 048

REACTIONS (9)
  - Lymphadenopathy [Unknown]
  - Carotid artery stenosis [Unknown]
  - Pharyngitis [Unknown]
  - Gastrooesophageal reflux disease [Unknown]
  - Atrophic glossitis [Unknown]
  - Vertigo [Unknown]
  - Blood chloride decreased [Unknown]
  - Vitamin B6 decreased [Unknown]
  - Drug hypersensitivity [Unknown]

NARRATIVE: CASE EVENT DATE: 20250131
